FAERS Safety Report 11287544 (Version 1)
Quarter: 2015Q3

REPORT INFORMATION
  Report Type: Spontaneous
  Country: US (occurrence: None)
  Receive Date: 20150720
  Receipt Date: 20150720
  Transmission Date: 20151125
  Serious: Yes (Disabling, Other)
  Sender: FDA-Public Use
  Company Number: None

PATIENT
  Age: 64 Year
  Sex: Female
  Weight: 90.72 kg

DRUGS (8)
  1. HCTZ [Concomitant]
     Active Substance: HYDROCHLOROTHIAZIDE
  2. CALCIUM WITH D [Concomitant]
     Active Substance: CALCIUM\VITAMIN D
  3. POTASSIUM [Concomitant]
     Active Substance: POTASSIUM
  4. PROPOFOL. [Suspect]
     Active Substance: PROPOFOL
     Indication: ANAESTHESIA
     Dosage: 1 DOSE
  5. ALBUTEROL. [Concomitant]
     Active Substance: ALBUTEROL
  6. FISH OIL [Concomitant]
     Active Substance: FISH OIL
  7. METFORMIN [Concomitant]
     Active Substance: METFORMIN HYDROCHLORIDE
  8. ASPIRIN. [Concomitant]
     Active Substance: ASPIRIN

REACTIONS (3)
  - Confusional state [None]
  - Delayed recovery from anaesthesia [None]
  - Panic reaction [None]

NARRATIVE: CASE EVENT DATE: 20150504
